FAERS Safety Report 4834628-1 (Version None)
Quarter: 2005Q4

REPORT INFORMATION
  Report Type: 
  Country: None (occurrence: None)
  Receive Date: 20051122
  Receipt Date: 20050524
  Transmission Date: 20060501
  Serious: No
  Sender: FDA-Public Use
  Company Number: US-BRISTOL-MYERS SQUIBB COMPANY-12980447

PATIENT
  Age: 73 Year
  Sex: Female
  Weight: 54 kg

DRUGS (6)
  1. PRAVACHOL [Suspect]
     Dates: start: 20050420
  2. MULTI-VITAMIN [Concomitant]
  3. ASPIRIN [Concomitant]
  4. VITAMIN B-12 [Concomitant]
  5. CALCIUM GLUCONATE [Concomitant]
  6. COENZYME [Concomitant]

REACTIONS (1)
  - MUSCLE SPASMS [None]
